FAERS Safety Report 6293846-9 (Version None)
Quarter: 2009Q3

REPORT INFORMATION
  Report Type: 
  Country: None (occurrence: None)
  Receive Date: 20090803
  Receipt Date: 20090721
  Transmission Date: 20100115
  Serious: Yes (Hospitalization)
  Sender: FDA-Public Use
  Company Number: ES-ELI_LILLY_AND_COMPANY-ES200907005484

PATIENT
  Age: 72 Year
  Sex: Male

DRUGS (10)
  1. FORTEO [Suspect]
     Dosage: 20 UG, UNKNOWN
     Route: 058
     Dates: start: 20080301
  2. ORFIDAL [Concomitant]
  3. ENALAPRIL MALEATE [Concomitant]
     Dosage: 10 MG, UNKNOWN
  4. ATENOLOL [Concomitant]
     Dosage: 50 MG, UNK
  5. SEGURIL [Concomitant]
  6. ADIRO [Concomitant]
     Dosage: 100 MG, UNK
  7. SIMVASTATIN [Concomitant]
     Dosage: 20 MG, UNK
  8. NOLOTIL [Concomitant]
     Dosage: UNK, OTHER (EACH 18 HOURS)
  9. DURAGESIC-100 [Concomitant]
     Dosage: 25 MG, UNK
  10. NULYTELY [Concomitant]

REACTIONS (1)
  - ABDOMINAL PAIN [None]
